FAERS Safety Report 8416971-2 (Version None)
Quarter: 2012Q2

REPORT INFORMATION
  Report Type: 
  Country: None (occurrence: None)
  Receive Date: 20120606
  Receipt Date: 20120529
  Transmission Date: 20120825
  Serious: Yes (Hospitalization)
  Sender: FDA-Public Use
  Company Number: US-BAXTER-2012BAX005805

PATIENT
  Sex: Male

DRUGS (2)
  1. DIANEAL [Suspect]
     Route: 033
  2. DIANEAL [Suspect]
     Indication: PERITONEAL DIALYSIS
     Route: 033

REACTIONS (4)
  - PNEUMONIA [None]
  - DRUG HYPERSENSITIVITY [None]
  - ADVERSE DRUG REACTION [None]
  - BLOOD PRESSURE DECREASED [None]
